FAERS Safety Report 4569520-3 (Version None)
Quarter: 2005Q1

REPORT INFORMATION
  Report Type: 
  Country: None (occurrence: None)
  Receive Date: 20050201
  Receipt Date: 20050120
  Transmission Date: 20050727
  Serious: Yes (Hospitalization)
  Sender: FDA-Public Use
  Company Number: 2005018209

PATIENT
  Age: 84 Year
  Sex: Male

DRUGS (1)
  1. CELEBREX [Suspect]
     Indication: OSTEOARTHRITIS
     Dosage: 100 OR 200 MG
     Dates: start: 20030101, end: 20040101

REACTIONS (1)
  - CEREBROVASCULAR ACCIDENT [None]
